FAERS Safety Report 9786248 (Version 1)
Quarter: 2013Q4

REPORT INFORMATION
  Report Type: Spontaneous
  Country: FR (occurrence: FR)
  Receive Date: 20131227
  Receipt Date: 20131227
  Transmission Date: 20140711
  Serious: Yes (Death, Hospitalization, Other)
  Sender: FDA-Public Use
  Company Number: FR-ELI_LILLY_AND_COMPANY-FR201312008176

PATIENT
  Age: 66 Year
  Sex: Female

DRUGS (11)
  1. GEMZAR [Suspect]
     Indication: CHOLANGIOCARCINOMA
     Dosage: 1 DF, CYCLICAL
     Route: 042
     Dates: start: 20130805
  2. CRESTOR [Suspect]
     Dosage: 5 MG, QD
     Route: 048
  3. INEXIUM /01479302/ [Suspect]
     Dosage: 20 MG, QD
     Route: 048
  4. DOLIPRANE [Suspect]
     Dosage: 500 MG, OTHER
     Route: 048
  5. DIFFU K [Suspect]
     Dosage: 6 DF, QD
     Route: 048
  6. LASILIX /00032601/ [Suspect]
     Dosage: 40 MG, QD
     Route: 048
  7. LOSARTAN POTASSIUM [Suspect]
     Dosage: 50 MG, QD
     Route: 048
  8. METFORMINE [Suspect]
     Dosage: 2 DF, QD
     Route: 048
  9. STILNOX [Suspect]
     Dosage: 0.5 MG, QD
     Route: 048
  10. FORLAX /00754501/ [Suspect]
     Dosage: 1 DF, QD
     Route: 048
  11. CIFLOX /00697201/ [Suspect]
     Indication: CYSTITIS
     Dosage: 500 MG, QD
     Route: 048
     Dates: start: 20130817, end: 20130824

REACTIONS (13)
  - Hyperglycaemia [Fatal]
  - Pneumocystis jirovecii infection [Fatal]
  - Sepsis [Fatal]
  - Asthenia [Recovered/Resolved]
  - Vomiting [Recovered/Resolved]
  - Nausea [Recovered/Resolved]
  - Impaired gastric emptying [Unknown]
  - Cholestasis [Unknown]
  - Renal failure [Unknown]
  - Anaemia [Unknown]
  - Dyspnoea [Unknown]
  - Weight decreased [Recovered/Resolved]
  - Weight decreased [Recovered/Resolved]
